FAERS Safety Report 6781326-3 (Version None)
Quarter: 2010Q2

REPORT INFORMATION
  Report Type: 
  Country: None (occurrence: None)
  Receive Date: 20100621
  Receipt Date: 20100610
  Transmission Date: 20101027
  Serious: Yes (Other)
  Sender: FDA-Public Use
  Company Number: US-NOVOPROD-304105

PATIENT
  Sex: Female
  Weight: 90.703 kg

DRUGS (11)
  1. NOVOLOG [Suspect]
     Indication: TYPE 1 DIABETES MELLITUS
     Dosage: 25-35 IU (6 TIMES QD)
     Route: 058
     Dates: start: 20000101
  2. LANTUS [Suspect]
     Indication: TYPE 1 DIABETES MELLITUS
     Dosage: 130 IU, QD (AT BEDTIME)
     Route: 058
     Dates: start: 20010101, end: 20100101
  3. VALIUM [Concomitant]
     Indication: MUSCLE SPASMS
     Dosage: UNK
     Route: 048
  4. PERCOCET [Concomitant]
     Indication: PAIN
     Dosage: UNK
     Route: 048
  5. XANAX [Concomitant]
     Indication: NERVOUSNESS
     Dosage: UNK
     Route: 048
  6. SINGULAIR [Concomitant]
     Indication: ASTHMA
     Dosage: UNK
     Route: 048
  7. SYMBICORT [Concomitant]
     Indication: ASTHMA
     Dosage: UNK
     Route: 048
  8. FLONASE [Concomitant]
     Indication: ASTHMA
     Dosage: UNK
     Route: 048
  9. PROTONIX [Concomitant]
     Indication: GASTROOESOPHAGEAL REFLUX DISEASE
     Dosage: UNK
     Route: 048
  10. ATENOLOL [Concomitant]
     Indication: HYPERTENSION
     Dosage: UNK
     Route: 048
  11. MYCELEX [Concomitant]
     Indication: ORAL CANDIDIASIS
     Dosage: UNK
     Route: 048

REACTIONS (10)
  - CONVULSION [None]
  - DIZZINESS [None]
  - DRY MOUTH [None]
  - DYSARTHRIA [None]
  - DYSPNOEA [None]
  - LOSS OF CONSCIOUSNESS [None]
  - OEDEMA MOUTH [None]
  - SUICIDAL IDEATION [None]
  - SWELLING FACE [None]
  - VISUAL IMPAIRMENT [None]
